FAERS Safety Report 7526607-0 (Version None)
Quarter: 2011Q2

REPORT INFORMATION
  Report Type: 
  Country: None (occurrence: None)
  Receive Date: 20110606
  Receipt Date: 20110602
  Transmission Date: 20111010
  Serious: Yes (Hospitalization)
  Sender: FDA-Public Use
  Company Number: ES-TEVA-281980ISR

PATIENT
  Age: 41 Year
  Sex: Male

DRUGS (3)
  1. METHOTREXATE [Suspect]
     Indication: POLYARTHRITIS
     Dosage: 10 MILLIGRAM;
     Route: 058
  2. PREDNISONE [Suspect]
  3. METHOTREXATE [Suspect]
     Dosage: 15 MILLIGRAM;
     Route: 058

REACTIONS (2)
  - HEPATITIS FULMINANT [None]
  - HEPATITIS B [None]
